FAERS Safety Report 9120370 (Version 1)
Quarter: 2013Q1

REPORT INFORMATION
  Report Type: Spontaneous
  Country: CA (occurrence: CA)
  Receive Date: 20130226
  Receipt Date: 20130226
  Transmission Date: 20140127
  Serious: Yes (Other)
  Sender: FDA-Public Use
  Company Number: CA-PFIZER INC-2013063841

PATIENT
  Age: 64 Year
  Sex: Female
  Weight: 77.1 kg

DRUGS (4)
  1. EFFEXOR [Suspect]
     Indication: DEPRESSION
     Dosage: 75 MG, 1X/DAY
  2. EFFEXOR [Suspect]
     Dosage: 37 MG, 1X/DAY
  3. SYNTHROID [Concomitant]
     Indication: THYROID DISORDER
     Dosage: 112 UG, 1X/DAY
  4. COVERSYL [Concomitant]
     Indication: HYPERTENSION
     Dosage: 8 MG, 1X/DAY

REACTIONS (15)
  - Thyroid neoplasm [Unknown]
  - Pulmonary mass [Unknown]
  - Pituitary tumour [Unknown]
  - Renal cyst [Unknown]
  - Joint stiffness [Unknown]
  - Vitamin B12 deficiency [Unknown]
  - Oesophageal disorder [Unknown]
  - Gastroenteritis [Unknown]
  - Feeling abnormal [Unknown]
  - Pain in extremity [Not Recovered/Not Resolved]
  - Tremor [Unknown]
  - Paraesthesia [Unknown]
  - Choking sensation [Unknown]
  - Flatulence [Unknown]
  - Withdrawal syndrome [Unknown]
